FAERS Safety Report 4343100-7 (Version None)
Quarter: 2004Q2

REPORT INFORMATION
  Report Type: 
  Country: None (occurrence: None)
  Receive Date: 20040421
  Receipt Date: 20030508
  Transmission Date: 20050107
  Serious: Yes (Death, Hospitalization, Other)
  Sender: FDA-Public Use
  Company Number: US-GLAXOSMITHKLINE-A0407975A

PATIENT
  Age: 74 Year
  Sex: Female
  Weight: 46.4 kg

DRUGS (6)
  1. FLOLAN [Suspect]
     Indication: PULMONARY HYPERTENSION
     Route: 042
     Dates: start: 20020801
  2. PRILOSEC [Concomitant]
  3. LASIX [Concomitant]
  4. ZAROXOLYN [Concomitant]
  5. CARDIZEM [Concomitant]
  6. SYNTHROID [Concomitant]

REACTIONS (5)
  - ASCITES [None]
  - BLOOD TRIGLYCERIDES INCREASED [None]
  - PNEUMONIA [None]
  - RESPIRATORY FAILURE [None]
  - RIGHT VENTRICULAR FAILURE [None]
